FAERS Safety Report 7893991-8 (Version None)
Quarter: 2011Q4

REPORT INFORMATION
  Report Type: 
  Country: None (occurrence: None)
  Receive Date: 20111104
  Receipt Date: 20111102
  Transmission Date: 20120403
  Serious: Yes (Other)
  Sender: FDA-Public Use
  Company Number: US-PFIZER INC-2011268689

PATIENT
  Sex: Female

DRUGS (3)
  1. GEODON [Suspect]
     Dosage: UNK
  2. ADDERALL 5 [Concomitant]
     Dosage: UNK
  3. LUVOX [Concomitant]
     Dosage: UNK

REACTIONS (6)
  - SWOLLEN TONGUE [None]
  - MALAISE [None]
  - NAUSEA [None]
  - THROAT TIGHTNESS [None]
  - LETHARGY [None]
  - SPEECH DISORDER [None]
